FAERS Safety Report 5693001-7 (Version None)
Quarter: 2008Q2

REPORT INFORMATION
  Report Type: 
  Country: None (occurrence: None)
  Receive Date: 20080402
  Receipt Date: 20080402
  Transmission Date: 20081010
  Serious: Yes (Life-Threatening, Disabling)
  Sender: FDA-Public Use
  Company Number: None

PATIENT
  Age: 60 Year
  Sex: Female
  Weight: 117.028 kg

DRUGS (2)
  1. SEROQUEL [Suspect]
     Indication: PSYCHOTIC DISORDER
     Dosage: ORALLY
     Route: 048
     Dates: start: 20030101, end: 20080101
  2. ZYPREXA [Suspect]
     Dosage: ORALLY
     Route: 048

REACTIONS (1)
  - DIABETES MELLITUS [None]
